FAERS Safety Report 5209153-9 (Version None)
Quarter: 2007Q1

REPORT INFORMATION
  Report Type: 
  Country: None (occurrence: None)
  Receive Date: 20070116
  Receipt Date: 20070110
  Transmission Date: 20070707
  Serious: Yes (Death, Life-Threatening, Other)
  Sender: FDA-Public Use
  Company Number: JP-BRISTOL-MYERS SQUIBB COMPANY-13628318

PATIENT
  Age: 65 Year
  Sex: Female

DRUGS (4)
  1. ENDOXAN [Suspect]
     Indication: LYMPHOMA
     Route: 041
     Dates: start: 20061212, end: 20061212
  2. BACTRIM [Suspect]
     Indication: PNEUMOCYSTIS JIROVECI PNEUMONIA
     Route: 048
     Dates: start: 20061122, end: 20061216
  3. ADRIAMYCIN PFS [Suspect]
     Indication: LYMPHOMA
     Route: 041
     Dates: start: 20061212, end: 20061212
  4. ONCOVIN [Suspect]
     Indication: LYMPHOMA
     Route: 042
     Dates: start: 20061212, end: 20061212

REACTIONS (4)
  - AGRANULOCYTOSIS [None]
  - DEPRESSED LEVEL OF CONSCIOUSNESS [None]
  - MENINGITIS BACTERIAL [None]
  - SEPSIS [None]
